FAERS Safety Report 24307722 (Version 1)
Quarter: 2024Q3

REPORT INFORMATION
  Report Type: Spontaneous
  Country: US (occurrence: None)
  Receive Date: 20240911
  Receipt Date: 20240911
  Transmission Date: 20241016
  Serious: Yes (Other)
  Sender: Public
  Company Number: None

PATIENT
  Age: 70 Year
  Sex: Female

DRUGS (1)
  1. XDEMVY [Suspect]
     Active Substance: LOTILANER
     Indication: Demodex blepharitis
     Dosage: OTHER QUANTITY : 1 DROP GG;?FREQUENCY : TWICE A DAY;?
     Route: 047
     Dates: start: 20240828, end: 20240905

REACTIONS (1)
  - Burning sensation [None]

NARRATIVE: CASE EVENT DATE: 20240828
